FAERS Safety Report 5628298-2 (Version None)
Quarter: 2008Q1

REPORT INFORMATION
  Report Type: 
  Country: None (occurrence: None)
  Receive Date: 20080215
  Receipt Date: 20080211
  Transmission Date: 20080703
  Serious: Yes (Other)
  Sender: FDA-Public Use
  Company Number: US-BOEHRINGER INGELHEIM GMBH, GERMANY-2008-BP-02105RO

PATIENT
  Age: 29 Year
  Sex: Female

DRUGS (9)
  1. CYCLOPHOSPHAMIDE [Suspect]
     Indication: BREAST CANCER
     Dates: start: 20040101
  2. DOXORUBICIN HCL [Suspect]
     Indication: BREAST CANCER
     Dates: start: 20040101
  3. PACLITAXEL [Suspect]
     Indication: BREAST CANCER
     Dates: start: 20040101
  4. TRASTUZUMAB [Suspect]
     Indication: BREAST CANCER METASTATIC
     Dates: start: 20050501
  5. VINORELBINE [Suspect]
     Indication: BREAST CANCER METASTATIC
     Dates: start: 20050501
  6. ZOLEDRONIC ACID [Suspect]
     Indication: BREAST CANCER METASTATIC
     Dates: start: 20050501
  7. TRASTUZUMAB [Concomitant]
     Indication: CHEMOTHERAPY
  8. GEMCITABINE [Concomitant]
     Indication: CHEMOTHERAPY
  9. CAPECITABINE [Concomitant]
     Indication: CHEMOTHERAPY

REACTIONS (4)
  - ABORTION INDUCED [None]
  - AMENORRHOEA [None]
  - PREGNANCY [None]
  - WAIST CIRCUMFERENCE INCREASED [None]
